FAERS Safety Report 11368745 (Version 1)
Quarter: 2015Q3

REPORT INFORMATION
  Report Type: Spontaneous
  Country: US (occurrence: None)
  Receive Date: 20150811
  Receipt Date: 20150811
  Transmission Date: 20151125
  Serious: No
  Sender: FDA-Public Use
  Company Number: None

PATIENT
  Age: 53 Year
  Sex: Male
  Weight: 72.3 kg

DRUGS (1)
  1. GLATIRAMER [Suspect]
     Active Substance: GLATIRAMER
     Dosage: ML SQ
     Route: 058
     Dates: start: 20150403

REACTIONS (4)
  - Chest pain [None]
  - Pruritus [None]
  - Injection site pain [None]
  - Dyspnoea [None]

NARRATIVE: CASE EVENT DATE: 20150403
